FAERS Safety Report 13350091 (Version 1)
Quarter: 2017Q1

REPORT INFORMATION
  Report Type: Spontaneous
  Country: US (occurrence: US)
  Receive Date: 20170317
  Receipt Date: 20170317
  Transmission Date: 20170429
  Serious: No
  Sender: FDA-Public Use
  Company Number: None

PATIENT
  Age: 31 Year
  Sex: Male

DRUGS (2)
  1. CYCLOSPORINE CAP 100MG [Suspect]
     Active Substance: CYCLOSPORINE
     Indication: PRODUCT USED FOR UNKNOWN INDICATION
  2. CYCLOSPORINE CAP 100MG [Suspect]
     Active Substance: CYCLOSPORINE
     Indication: ARTERITIS

REACTIONS (1)
  - Hypertension [None]

NARRATIVE: CASE EVENT DATE: 20170301
